FAERS Safety Report 6963972-7 (Version None)
Quarter: 2010Q3

REPORT INFORMATION
  Report Type: 
  Country: None (occurrence: None)
  Receive Date: 20100902
  Receipt Date: 20100902
  Transmission Date: 20110219
  Serious: Yes (Other)
  Sender: FDA-Public Use
  Company Number: None

PATIENT
  Age: 58 Year
  Sex: Male
  Weight: 83.9 kg

DRUGS (1)
  1. MARCAINE [Suspect]
     Indication: SURGERY
     Dosage: 11.25MG ONE TIME INTRADISCAL (
     Route: 050
     Dates: start: 20100820, end: 20100828

REACTIONS (2)
  - PRODUCT QUALITY ISSUE [None]
  - UNWANTED AWARENESS DURING ANAESTHESIA [None]
